FAERS Safety Report 21102147 (Version 2)
Quarter: 2022Q3

REPORT INFORMATION
  Report Type: Report from Study
  Country: CN (occurrence: CN)
  Receive Date: 20220719
  Receipt Date: 20220727
  Transmission Date: 20221027
  Serious: Yes (Hospitalization)
  Sender: FDA-Public Use
  Company Number: CN-JNJFOC-20220724976

PATIENT
  Age: 58 Year
  Sex: Male
  Weight: 55 kg

DRUGS (20)
  1. AMIVANTAMAB [Suspect]
     Active Substance: AMIVANTAMAB
     Indication: Lung neoplasm malignant
     Dosage: MOST RECENT DOSE ON 02-JUL-2022
     Route: 042
     Dates: start: 20220701, end: 20220702
  2. CARBOPLATIN [Suspect]
     Active Substance: CARBOPLATIN
     Indication: Lung neoplasm malignant
     Route: 042
     Dates: start: 20220701, end: 20220701
  3. PEMETREXED [Suspect]
     Active Substance: PEMETREXED
     Indication: Lung neoplasm malignant
     Route: 042
     Dates: start: 20220701, end: 20220701
  4. DEXAMETHASONE ACETATE [Concomitant]
     Active Substance: DEXAMETHASONE ACETATE
     Indication: Allergy prophylaxis
     Route: 048
     Dates: start: 20220702, end: 20220704
  5. ACARBOSE [Concomitant]
     Active Substance: ACARBOSE
     Indication: Diabetes mellitus
     Route: 048
  6. DONFERI GANNING [Concomitant]
     Indication: Hepatic failure
     Route: 048
     Dates: start: 20220624, end: 20220704
  7. VITAMIN B12 [Concomitant]
     Active Substance: CYANOCOBALAMIN
     Indication: Vitamin supplementation
     Route: 030
     Dates: start: 20220701, end: 20220701
  8. FAMOTIDINE [Concomitant]
     Active Substance: FAMOTIDINE
     Indication: Gastrointestinal disorder therapy
     Route: 042
     Dates: start: 20220701, end: 20220701
  9. DEXAMETHASONE SODIUM PHOSPHATE [Concomitant]
     Active Substance: DEXAMETHASONE SODIUM PHOSPHATE
     Indication: Allergy prophylaxis
     Route: 042
     Dates: start: 20220701, end: 20220701
  10. DEXAMETHASONE SODIUM PHOSPHATE [Concomitant]
     Active Substance: DEXAMETHASONE SODIUM PHOSPHATE
     Route: 042
     Dates: start: 20220702, end: 20220702
  11. DIPHENHYDRAMINE HYDROCHLORIDE [Concomitant]
     Active Substance: DIPHENHYDRAMINE HYDROCHLORIDE
     Indication: Prophylaxis of nausea and vomiting
     Route: 030
     Dates: start: 20220701, end: 20220701
  12. DIPHENHYDRAMINE HYDROCHLORIDE [Concomitant]
     Active Substance: DIPHENHYDRAMINE HYDROCHLORIDE
     Indication: Prophylaxis of nausea and vomiting
     Route: 030
     Dates: start: 20220708, end: 20220708
  13. INSULIN NOS [Concomitant]
     Active Substance: INSULIN NOS
     Indication: Diabetes mellitus
     Route: 058
     Dates: start: 20220701, end: 20220701
  14. TEN GENTIAN FLOWER GRANULES [Concomitant]
     Route: 048
     Dates: start: 20220703, end: 20220704
  15. POTASSIUM CITRATE [Concomitant]
     Active Substance: POTASSIUM CITRATE
     Indication: Hypokalaemia
     Route: 048
     Dates: start: 20220703, end: 20220704
  16. MEDROXYPROGESTERONE [Concomitant]
     Active Substance: MEDROXYPROGESTERONE
     Indication: Decreased appetite
     Route: 048
     Dates: start: 20220703, end: 20220704
  17. SHEN SONG YANG XIN [Concomitant]
     Route: 048
     Dates: start: 20220703, end: 20220704
  18. RANITIDINE HYDROCHLORIDE [Concomitant]
     Active Substance: RANITIDINE HYDROCHLORIDE
     Route: 042
     Dates: start: 20220704, end: 20220704
  19. LEVOFLOXACIN SODIUM [Concomitant]
     Active Substance: LEVOFLOXACIN SODIUM
     Indication: Infection prophylaxis
     Route: 042
     Dates: start: 20220708, end: 20220714
  20. WEI XUE NING [Concomitant]
     Indication: Platelet count decreased
     Route: 048
     Dates: start: 20220708, end: 20220718

REACTIONS (1)
  - Thrombocytopenia [Recovered/Resolved]

NARRATIVE: CASE EVENT DATE: 20220708
